FAERS Safety Report 6028259-8 (Version None)
Quarter: 2009Q1

REPORT INFORMATION
  Report Type: 
  Country: None (occurrence: None)
  Receive Date: 20090106
  Receipt Date: 20081229
  Transmission Date: 20090719
  Serious: Yes (Death)
  Sender: FDA-Public Use
  Company Number: US-CELGENEUS-163-20484-08110266

PATIENT
  Sex: Male

DRUGS (2)
  1. INNOHEP [Suspect]
     Indication: PULMONARY EMBOLISM
     Route: 050
  2. INNOHEP [Suspect]

REACTIONS (1)
  - NEOPLASM PROGRESSION [None]
